FAERS Safety Report 6258381-2 (Version None)
Quarter: 2009Q3

REPORT INFORMATION
  Report Type: 
  Country: None (occurrence: None)
  Receive Date: 20090701
  Receipt Date: 20080813
  Transmission Date: 20100115
  Serious: Yes (Hospitalization)
  Sender: FDA-Public Use
  Company Number: 580783

PATIENT
  Age: 40 Year
  Sex: Male
  Weight: 75.8 kg

DRUGS (2)
  1. KLONOPIN [Suspect]
     Indication: ANXIETY
     Dosage: 2MG 1 PER 3 DAY ORAL
     Route: 048
     Dates: start: 19940101
  2. HYPERTENSIVE NOS (HYPERTENSIVE NOS) [Concomitant]

REACTIONS (4)
  - DEPENDENCE [None]
  - HYPERTENSION [None]
  - LOSS OF CONSCIOUSNESS [None]
  - OVERDOSE [None]
